FAERS Safety Report 18698637 (Version 3)
Quarter: 2021Q1

REPORT INFORMATION
  Report Type: Other
  Country: CA (occurrence: CA)
  Receive Date: 20210105
  Receipt Date: 20210326
  Transmission Date: 20210419
  Serious: Yes (Hospitalization, Other)
  Sender: FDA-Public Use
  Company Number: CA-INTERCEPT-PM2020002606

PATIENT
  Age: 72 Year
  Sex: Female
  Weight: 79 kg

DRUGS (7)
  1. SYNTHROID [Concomitant]
     Active Substance: LEVOTHYROXINE SODIUM
     Dosage: UNK
  2. NADOLOL. [Concomitant]
     Active Substance: NADOLOL
     Indication: HEPATIC CIRRHOSIS
     Dosage: UNK
     Dates: start: 2017
  3. URSODEOXYCHOLIC ACID [Concomitant]
     Active Substance: URSODIOL
     Indication: HEPATIC CIRRHOSIS
     Dosage: 1250 MILLIGRAM, QD
     Dates: start: 2016
  4. OCALIVA [Suspect]
     Active Substance: OBETICHOLIC ACID
     Indication: PRIMARY BILIARY CHOLANGITIS
     Dosage: 5 MILLIGRAM, QW
     Route: 048
     Dates: start: 20200215, end: 2020
  5. OCALIVA [Suspect]
     Active Substance: OBETICHOLIC ACID
     Dosage: 5 MILLIGRAM, 2X/WK
     Route: 048
     Dates: start: 20200722
  6. RIFAXIMINE [Concomitant]
     Active Substance: RIFAXIMIN
     Indication: HEPATIC CIRRHOSIS
     Dosage: 550 MILLIGRAM
     Dates: start: 2018
  7. KOMBOGLYZE [Concomitant]
     Active Substance: METFORMIN HYDROCHLORIDE\SAXAGLIPTIN
     Indication: DIABETES MELLITUS
     Dosage: UNK

REACTIONS (7)
  - Gastrointestinal haemorrhage [Recovered/Resolved]
  - Fall [Recovered/Resolved]
  - Gastrointestinal angiectasia [Recovered/Resolved]
  - Hepatic cancer [Not Recovered/Not Resolved]
  - Radiotherapy to liver [Recovered/Resolved]
  - Haemoglobin decreased [Recovered/Resolved]
  - Lip injury [Recovered/Resolved]

NARRATIVE: CASE EVENT DATE: 202009
